FAERS Safety Report 15754095 (Version 1)
Quarter: 2018Q4

REPORT INFORMATION
  Report Type: Spontaneous
  Country: IT (occurrence: IT)
  Receive Date: 20181223
  Receipt Date: 20181223
  Transmission Date: 20190205
  Serious: Yes (Life-Threatening)
  Sender: FDA-Public Use
  Company Number: IT-DEXPHARM-20180944

PATIENT
  Age: 71 Year
  Sex: Male
  Weight: 90 kg

DRUGS (7)
  1. PROPOFOL. [Concomitant]
     Active Substance: PROPOFOL
     Indication: ANAESTHESIA
     Route: 042
     Dates: start: 20181128, end: 20181128
  2. REMIFENTANIL [Concomitant]
     Active Substance: REMIFENTANIL
     Indication: ANAESTHESIA
     Dates: start: 20181128, end: 20181128
  3. ULTRAVIST [Suspect]
     Active Substance: IOPROMIDE
     Indication: SURGERY
     Dosage: AS NECESSARY
     Route: 013
     Dates: start: 20181128, end: 20181128
  4. ULTRAVIST [Suspect]
     Active Substance: IOPROMIDE
     Indication: SURGERY
     Dosage: AS NECESSARY
     Route: 013
     Dates: start: 20181128, end: 20181128
  5. CEFTRIAXONE. [Concomitant]
     Active Substance: CEFTRIAXONE
     Indication: ANTIBIOTIC PROPHYLAXIS
     Route: 042
     Dates: start: 20181128, end: 20181128
  6. CHLORHEXIDINE GLUCONATE. [Suspect]
     Active Substance: CHLORHEXIDINE GLUCONATE
     Indication: INFECTION PROPHYLAXIS
     Dates: start: 20181128, end: 20181128
  7. ROCURONIUM BROMIDE. [Concomitant]
     Active Substance: ROCURONIUM BROMIDE
     Indication: ANAESTHESIA
     Dates: start: 20181128, end: 20181128

REACTIONS (1)
  - Angioedema [Recovering/Resolving]

NARRATIVE: CASE EVENT DATE: 20181128
